FAERS Safety Report 10195772 (Version 1)
Quarter: 2014Q2

REPORT INFORMATION
  Report Type: Spontaneous
  Country: US (occurrence: None)
  Receive Date: 20140522
  Receipt Date: 20140522
  Transmission Date: 20141212
  Serious: Yes (Hospitalization)
  Sender: FDA-Public Use
  Company Number: None

PATIENT
  Age: 47 Year
  Sex: Male
  Weight: 97.3 kg

DRUGS (2)
  1. ALDESLEUKIN - PROLEUKIN 62,000,000 UNITS PROMETHEUS [Suspect]
     Indication: MALIGNANT MELANOMA
     Dates: start: 20140127, end: 20140326
  2. ALDESLEUKIN - PROLEUKIN 62,000,000 UNITS PROMETHEUS [Suspect]
     Indication: MALIGNANT NEOPLASM PROGRESSION
     Dates: start: 20140127, end: 20140326

REACTIONS (2)
  - Pain in extremity [None]
  - Abasia [None]
